FAERS Safety Report 7674539-X (Version None)
Quarter: 2011Q3

REPORT INFORMATION
  Report Type: 
  Country: None (occurrence: None)
  Receive Date: 20110810
  Receipt Date: 20110801
  Transmission Date: 20111222
  Serious: Yes (Hospitalization)
  Sender: FDA-Public Use
  Company Number: PHHY2011FR56880

PATIENT
  Sex: Male
  Weight: 72 kg

DRUGS (3)
  1. RASILEZ HCT [Suspect]
     Dosage: 300 MG, QD
     Route: 048
     Dates: start: 20101228, end: 20110524
  2. DILTIAZEM [Concomitant]
     Indication: HYPERTENSION
     Dosage: 200 MG, QD
     Dates: start: 20010206
  3. ZOLPIDEM [Concomitant]
     Indication: INSOMNIA
     Dosage: 1 DF, QD
     Dates: start: 20101208

REACTIONS (2)
  - MALAISE [None]
  - PRESYNCOPE [None]
